FAERS Safety Report 6530471-6 (Version None)
Quarter: 2010Q1

REPORT INFORMATION
  Report Type: 
  Country: None (occurrence: None)
  Receive Date: 20100106
  Receipt Date: 20100106
  Transmission Date: 20100710
  Serious: Yes (Other)
  Sender: FDA-Public Use
  Company Number: None

PATIENT
  Sex: Male
  Weight: 91.6266 kg

DRUGS (2)
  1. LYRICA [Suspect]
     Indication: NERVE INJURY
     Dosage: 1 TWICE PER DAY
     Dates: start: 20080306
  2. TOPAMAX [Suspect]
     Dosage: DOCTOR ORDERED TO STOP TAKING

REACTIONS (2)
  - PARAESTHESIA [None]
  - RASH PRURITIC [None]
